FAERS Safety Report 6627685-3 (Version None)
Quarter: 2010Q1

REPORT INFORMATION
  Report Type: 
  Country: None (occurrence: None)
  Receive Date: 20100308
  Receipt Date: 20100218
  Transmission Date: 20100710
  Serious: Yes (Other)
  Sender: FDA-Public Use
  Company Number: LMI-2010-00070

PATIENT
  Age: 47 Year
  Sex: Male
  Weight: 230.3366 kg

DRUGS (10)
  1. DEFINITY [Suspect]
     Indication: ATRIAL FIBRILLATION
     Dosage: STANDARD DILUTION; 1.3 ML OF DEFINITY DILUTED WITH 8.7 ML OF NORMAL SALINE (3 ML), INTRAVENOUS BOLUS
     Route: 040
     Dates: start: 20090909, end: 20090909
  2. DEFINITY [Suspect]
     Indication: ECHOCARDIOGRAM
     Dosage: STANDARD DILUTION; 1.3 ML OF DEFINITY DILUTED WITH 8.7 ML OF NORMAL SALINE (3 ML), INTRAVENOUS BOLUS
     Route: 040
     Dates: start: 20090909, end: 20090909
  3. CEFEPIME [Concomitant]
  4. DOCUSATE (DOCUSATE) [Concomitant]
  5. FAMOTIDINE [Concomitant]
  6. INSULIN (INSULIN) [Concomitant]
  7. NABUMETONE [Concomitant]
  8. TIGECYCLINE (TIGECYCLINE) [Concomitant]
  9. CLOTRIMAZOLE [Concomitant]
  10. HYDROCODONE (HYDROCODONE) [Concomitant]

REACTIONS (2)
  - RENAL FAILURE [None]
  - RESPIRATORY FAILURE [None]
